FAERS Safety Report 12880085 (Version 1)
Quarter: 2016Q4

REPORT INFORMATION
  Report Type: Spontaneous
  Country: US (occurrence: US)
  Receive Date: 20161021
  Receipt Date: 20161021
  Transmission Date: 20170207
  Serious: No
  Sender: FDA-Public Use
  Company Number: None

PATIENT
  Age: 55 Year
  Sex: Female

DRUGS (3)
  1. TACROLIMUS CAP 1MG [Suspect]
     Active Substance: TACROLIMUS
     Indication: RENAL TRANSPLANT
     Dosage: 1 MG 3 TABS BID PO
     Route: 048
  2. TACROLIMUS CAP 1MG [Suspect]
     Active Substance: TACROLIMUS
     Indication: CHRONIC KIDNEY DISEASE
     Dosage: 1 MG 3 TABS BID PO
     Route: 048
  3. TACROLIMUS CAP 1MG [Suspect]
     Active Substance: TACROLIMUS
     Indication: TOXICITY TO VARIOUS AGENTS
     Dosage: 1 MG 3 TABS BID PO
     Route: 048

REACTIONS (1)
  - Altered state of consciousness [None]

NARRATIVE: CASE EVENT DATE: 20161018
